FAERS Safety Report 8846031 (Version 3)
Quarter: 2012Q4

REPORT INFORMATION
  Report Type: 
  Country: US (occurrence: US)
  Receive Date: 20121017
  Receipt Date: 20121217
  Transmission Date: 20130627
  Serious: No
  Sender: FDA-Public Use
  Company Number: US-VERTEX PHARMACEUTICAL INC.-2012-022563

PATIENT
  Age: 47 Year
  Sex: Male
  Weight: 77 kg

DRUGS (5)
  1. INCIVEK [Suspect]
     Indication: HEPATITIS C
     Dosage: 750 mg, tid
     Route: 048
     Dates: start: 20120928, end: 20121024
  2. PEGASYS [Suspect]
     Indication: HEPATITIS C
     Dosage: 180 mcg , weekly
     Route: 058
     Dates: start: 20120928
  3. RIBAVIRIN [Suspect]
     Indication: HEPATITIS C
     Dosage: 600mg QAM, 400mg QPM
     Route: 048
     Dates: start: 20120928
  4. TAMSULOSIN [Concomitant]
     Dosage: 0.4 mg, qd
  5. LISINOPRIL + HIDROCLOROTIAZIDA [Concomitant]
     Dosage: 20/28 mg , qd

REACTIONS (7)
  - Poor quality sleep [Recovered/Resolved]
  - Haemorrhoids [Recovered/Resolved]
  - Swelling [Recovered/Resolved]
  - Rectal fissure [Not Recovered/Not Resolved]
  - Painful defaecation [Not Recovered/Not Resolved]
  - Proctalgia [Recovered/Resolved]
  - Rectal haemorrhage [Not Recovered/Not Resolved]
